FAERS Safety Report 7139441-0 (Version None)
Quarter: 2010Q4

REPORT INFORMATION
  Report Type: 
  Country: None (occurrence: None)
  Receive Date: 20101206
  Receipt Date: 20101130
  Transmission Date: 20110411
  Serious: Yes (Hospitalization)
  Sender: FDA-Public Use
  Company Number: JP-PFIZER INC-2010157246

PATIENT
  Age: 75 Year
  Sex: Female

DRUGS (2)
  1. ALDACTONE [Suspect]
     Indication: CARDIAC FAILURE
     Dosage: 25 MG, 1X/DAY
  2. WARFARIN SODIUM [Suspect]

REACTIONS (1)
  - PLATELET COUNT DECREASED [None]
